FAERS Safety Report 11073288 (Version 1)
Quarter: 2015Q2

REPORT INFORMATION
  Report Type: Report from Study
  Country: US (occurrence: US)
  Receive Date: 20150428
  Receipt Date: 20150428
  Transmission Date: 20150821
  Serious: Yes (Death, Hospitalization, Other)
  Sender: FDA-Public Use
  Company Number: US-BRISTOL-MYERS SQUIBB COMPANY-16287997

PATIENT
  Age: 78 Year
  Sex: Male

DRUGS (9)
  1. ZOMETA [Concomitant]
     Active Substance: ZOLEDRONIC ACID
     Dosage: 4 MG, Q4WK
     Route: 042
  2. TEGRETOL-XR [Concomitant]
     Active Substance: CARBAMAZEPINE
     Dosage: 400 MG, BID
  3. IPILIMUMAB [Suspect]
     Active Substance: IPILIMUMAB
     Indication: PROSTATE CANCER
     Dosage: 730 MG, UNK
     Route: 042
     Dates: start: 20110810
  4. CALCIUM [Concomitant]
     Active Substance: CALCIUM
     Dosage: 600 MG, QD
  5. LOSARTAN [Concomitant]
     Active Substance: LOSARTAN
     Dosage: 25 MG, QD
  6. LIPITOR [Concomitant]
     Active Substance: ATORVASTATIN CALCIUM
     Dosage: 20 MG, QD
  7. CLONAZEPAM. [Concomitant]
     Active Substance: CLONAZEPAM
     Dosage: .5 MG, QD
  8. LUPRON [Concomitant]
     Active Substance: LEUPROLIDE ACETATE
     Dosage: 30 MG, Q4WK
     Route: 030
  9. VITAMIN D3 [Concomitant]
     Active Substance: CHOLECALCIFEROL
     Dosage: 4000 IU, UNK

REACTIONS (3)
  - Cerebral haemorrhage [Fatal]
  - Cardio-respiratory arrest [Fatal]
  - Cerebrovascular accident [Fatal]

NARRATIVE: CASE EVENT DATE: 20111209
